FAERS Safety Report 5729821-X (Version None)
Quarter: 2008Q2

REPORT INFORMATION
  Report Type: 
  Country: None (occurrence: None)
  Receive Date: 20080501
  Receipt Date: 20080403
  Transmission Date: 20081010
  Serious: Yes (Death)
  Sender: FDA-Public Use
  Company Number: 2008S1005641

PATIENT
  Age: 38 Year
  Sex: Male

DRUGS (7)
  1. TRAMADOL HCL [Suspect]
  2. METHADONE HCL [Concomitant]
  3. MIRTAZAPINE [Concomitant]
  4. MORPHINE [Concomitant]
  5. PROMETHAZINE [Concomitant]
  6. PROPOXYPHENE (DEXTROPROPOXYPHENE) [Concomitant]
  7. VENLAFAXINE HCL [Concomitant]

REACTIONS (1)
  - DRUG TOXICITY [None]
